FAERS Safety Report 14038730 (Version 5)
Quarter: 2018Q3

REPORT INFORMATION
  Report Type: Report from Study
  Country: US (occurrence: US)
  Receive Date: 20171004
  Receipt Date: 20180823
  Transmission Date: 20181010
  Serious: Yes (Disabling, Other)
  Sender: FDA-Public Use
  Company Number: US-SA-2016SA151459

PATIENT
  Age: 46 Year
  Sex: Male

DRUGS (2)
  1. ALEMTUZUMAB [Suspect]
     Active Substance: ALEMTUZUMAB
     Dosage: 12 MG, QD
     Route: 041
     Dates: start: 20160815, end: 20160815
  2. ALEMTUZUMAB [Suspect]
     Active Substance: ALEMTUZUMAB
     Indication: MULTIPLE SCLEROSIS
     Dosage: 12 MG, QD
     Route: 041
     Dates: start: 20160808, end: 20160811

REACTIONS (21)
  - Fall [Recovering/Resolving]
  - Laboratory test abnormal [Recovering/Resolving]
  - Immunosuppression [Recovered/Resolved]
  - Musculoskeletal pain [Not Recovered/Not Resolved]
  - Swelling [Not Recovered/Not Resolved]
  - Infection [Not Recovered/Not Resolved]
  - Herpes zoster [Unknown]
  - Diabetes mellitus [Unknown]
  - Gastrostomy [Unknown]
  - Skin abrasion [Recovering/Resolving]
  - Ill-defined disorder [Unknown]
  - Thyroid function test abnormal [Not Recovered/Not Resolved]
  - Red blood cell count abnormal [Not Recovered/Not Resolved]
  - Condition aggravated [Recovering/Resolving]
  - Sensory loss [Unknown]
  - White blood cell count decreased [Not Recovered/Not Resolved]
  - Gait inability [Recovering/Resolving]
  - Gait disturbance [Not Recovered/Not Resolved]
  - Rotator cuff syndrome [Not Recovered/Not Resolved]
  - Catheter placement [Unknown]
  - Product use issue [Unknown]

NARRATIVE: CASE EVENT DATE: 201608
